FAERS Safety Report 13871445 (Version 2)
Quarter: 2020Q2

REPORT INFORMATION
  Report Type: Spontaneous
  Country: US (occurrence: US)
  Receive Date: 20170816
  Receipt Date: 20200525
  Transmission Date: 20200713
  Serious: Yes (Death, Hospitalization, Other)
  Sender: FDA-Public Use
  Company Number: US-009507513-1708USA006785

PATIENT
  Sex: Male
  Weight: 86.17 kg

DRUGS (4)
  1. STARLIX [Concomitant]
     Active Substance: NATEGLINIDE
     Indication: TYPE 2 DIABETES MELLITUS
     Route: 048
  2. JANUVIA [Suspect]
     Active Substance: SITAGLIPTIN PHOSPHATE
     Indication: TYPE 2 DIABETES MELLITUS
     Dosage: 100 MILLIGRAM, ONCE DAILY
     Route: 048
     Dates: start: 2009, end: 201510
  3. GLUCOPHAGE [Concomitant]
     Active Substance: METFORMIN HYDROCHLORIDE
     Indication: TYPE 2 DIABETES MELLITUS
     Dosage: 1000 MG, BID
     Route: 048
  4. GLUCOTROL [Concomitant]
     Active Substance: GLIPIZIDE
     Indication: TYPE 2 DIABETES MELLITUS
     Route: 048

REACTIONS (27)
  - Metastases to bone [Not Recovered/Not Resolved]
  - Hyponatraemia [Unknown]
  - Pleural effusion [Unknown]
  - Hypercholesterolaemia [Not Recovered/Not Resolved]
  - Hiatus hernia [Unknown]
  - Obstruction gastric [Not Recovered/Not Resolved]
  - Hyperkalaemia [Unknown]
  - Pneumonia [Unknown]
  - Dehydration [Unknown]
  - Coagulopathy [Not Recovered/Not Resolved]
  - Stress [Unknown]
  - Neuropathy peripheral [Unknown]
  - Spinal operation [Unknown]
  - Pancreatic carcinoma metastatic [Fatal]
  - Micturition urgency [Unknown]
  - Oesophageal disorder [Unknown]
  - Arthralgia [Unknown]
  - Blood loss anaemia [Not Recovered/Not Resolved]
  - Pain [Not Recovered/Not Resolved]
  - Diabetic neuropathy [Not Recovered/Not Resolved]
  - Oesophageal rupture [Not Recovered/Not Resolved]
  - Mass [Unknown]
  - Exostosis [Unknown]
  - Duodenitis [Unknown]
  - Atelectasis [Unknown]
  - Granuloma [Unknown]
  - Hepatic enzyme increased [Unknown]

NARRATIVE: CASE EVENT DATE: 2015
